FAERS Safety Report 24550820 (Version 1)
Quarter: 2024Q4

REPORT INFORMATION
  Report Type: Spontaneous
  Country: JP (occurrence: JP)
  Receive Date: 20241025
  Receipt Date: 20241025
  Transmission Date: 20250115
  Serious: Yes (Hospitalization)
  Sender: ALEXION PHARMACEUTICALS
  Company Number: JP-ASTRAZENECA-240097918_013020_P_1

PATIENT

DRUGS (4)
  1. TAGRISSO [Suspect]
     Active Substance: OSIMERTINIB
     Indication: Non-small cell lung cancer
     Dosage: 40 MILLIGRAM, QD
  2. TAGRISSO [Suspect]
     Active Substance: OSIMERTINIB
     Dosage: 40 MILLIGRAM, QD
  3. TAGRISSO [Suspect]
     Active Substance: OSIMERTINIB
     Dosage: 40 MILLIGRAM, QD
  4. TAGRISSO [Suspect]
     Active Substance: OSIMERTINIB
     Dosage: 40 MILLIGRAM, QD

REACTIONS (1)
  - Fracture [Unknown]
